FAERS Safety Report 8333796-7 (Version None)
Quarter: 2012Q2

REPORT INFORMATION
  Report Type: 
  Country: None (occurrence: None)
  Receive Date: 20120503
  Receipt Date: 20120423
  Transmission Date: 20120825
  Serious: Yes (Hospitalization)
  Sender: FDA-Public Use
  Company Number: JP-ELI_LILLY_AND_COMPANY-JP201204008449

PATIENT
  Sex: Female

DRUGS (2)
  1. FORTEO [Suspect]
     Dosage: UNK
     Route: 058
     Dates: start: 20120423
  2. FORTEO [Suspect]
     Dosage: UNK
     Route: 058
     Dates: start: 20111227, end: 20120301

REACTIONS (1)
  - INTESTINAL OBSTRUCTION [None]
